FAERS Safety Report 6579943-9 (Version None)
Quarter: 2010Q1

REPORT INFORMATION
  Report Type: 
  Country: None (occurrence: None)
  Receive Date: 20100212
  Receipt Date: 20100205
  Transmission Date: 20100710
  Serious: Yes (Other)
  Sender: FDA-Public Use
  Company Number: US-PFIZER INC-2010016409

PATIENT
  Sex: Female
  Weight: 74.83 kg

DRUGS (5)
  1. LIPITOR [Suspect]
     Indication: BLOOD CHOLESTEROL INCREASED
     Dosage: 20 MG, 1X/DAY
     Route: 048
     Dates: start: 20000101
  2. SYNTHROID [Concomitant]
     Dosage: UNK
  3. DIOVAN [Concomitant]
  4. PREMARIN [Concomitant]
  5. TOPROL-XL [Concomitant]

REACTIONS (1)
  - COELIAC DISEASE [None]
